FAERS Safety Report 4422532-2 (Version None)
Quarter: 2004Q3

REPORT INFORMATION
  Report Type: 
  Country: None (occurrence: None)
  Receive Date: 20040713
  Receipt Date: 20040116
  Transmission Date: 20050211
  Serious: No
  Sender: FDA-Public Use
  Company Number: PHEH2004US00926

PATIENT
  Age: 18 Month
  Sex: Male

DRUGS (1)
  1. ELIDEL [Suspect]
     Indication: ECZEMA
     Dosage: QD, TOPICAL
     Route: 061
     Dates: start: 20031001

REACTIONS (2)
  - DRUG INEFFECTIVE [None]
  - SCAB [None]
